FAERS Safety Report 18957651 (Version 4)
Quarter: 2021Q2

REPORT INFORMATION
  Report Type: Spontaneous
  Country: BE (occurrence: BE)
  Receive Date: 20210302
  Receipt Date: 20210611
  Transmission Date: 20210717
  Serious: Yes (Life-Threatening)
  Sender: FDA-Public Use
  Company Number: BE-ROCHE-2779525

PATIENT
  Age: 48 Year
  Sex: Male
  Weight: 67.2 kg

DRUGS (16)
  1. MYCOPHENOLATE MOFETIL. [Suspect]
     Active Substance: MYCOPHENOLATE MOFETIL
     Indication: RENAL TRANSPLANT
     Dosage: 2 G, ONCE/SINGLE
     Route: 048
     Dates: start: 20210209, end: 20210209
  2. SEVORANE [Concomitant]
     Active Substance: SEVOFLURANE
     Dosage: UNK
     Dates: start: 202102
  3. OLMESARTAN MEDOXOMIL. [Concomitant]
     Active Substance: OLMESARTAN MEDOXOMIL
     Dosage: UNK
     Dates: start: 20181211, end: 20210208
  4. SIMULECT [Concomitant]
     Active Substance: BASILIXIMAB
  5. SOLU?MEDROL [Concomitant]
     Active Substance: METHYLPREDNISOLONE SODIUM SUCCINATE
     Dosage: UNK
     Dates: start: 20190801, end: 20210209
  6. ISCALIMAB [Suspect]
     Active Substance: ISCALIMAB
     Indication: PRODUCT USED FOR UNKNOWN INDICATION
     Dosage: 13.4 MILLILITE, OTHER
     Route: 042
     Dates: start: 20210209
  7. RENEPHO [Concomitant]
     Dosage: UNK
     Dates: start: 20180130, end: 20210208
  8. ESMERON [Suspect]
     Active Substance: ROCURONIUM BROMIDE
     Indication: PRODUCT USED FOR UNKNOWN INDICATION
     Route: 065
     Dates: start: 202102
  9. SOLU?MEDROL [Concomitant]
     Active Substance: METHYLPREDNISOLONE SODIUM SUCCINATE
     Dosage: UNK
     Dates: start: 20210209, end: 20210209
  10. PROPOFOL. [Concomitant]
     Active Substance: PROPOFOL
     Dosage: 50 MILLIGRAM
     Dates: start: 202102
  11. ALLOPURINOL. [Concomitant]
     Active Substance: ALLOPURINOL
     Dosage: UNK
     Dates: start: 20061010, end: 20210208
  12. RENVELA [Concomitant]
     Active Substance: SEVELAMER CARBONATE
     Dosage: UNK
     Dates: start: 20180130, end: 20210208
  13. SUFENTANIL [Concomitant]
     Active Substance: SUFENTANIL
     Dosage: 5 MILLIGRAM
     Dates: start: 202102
  14. PHENYLEPHRINE [Suspect]
     Active Substance: PHENYLEPHRINE HYDROCHLORIDE
     Indication: PRODUCT USED FOR UNKNOWN INDICATION
     Route: 065
  15. CEFAZOLIN SODIUM. [Concomitant]
     Active Substance: CEFAZOLIN SODIUM
     Dosage: UNK
     Dates: start: 20210209, end: 20210209
  16. PANTOMED (BELGIUM) [Concomitant]
     Active Substance: PANTOPRAZOLE SODIUM
     Dosage: UNK
     Dates: start: 20171018, end: 20210209

REACTIONS (3)
  - Hypotension [Unknown]
  - Anaphylactic shock [Not Recovered/Not Resolved]
  - Tachycardia [Unknown]

NARRATIVE: CASE EVENT DATE: 202102
